FAERS Safety Report 16635659 (Version 1)
Quarter: 2019Q3

REPORT INFORMATION
  Report Type: Spontaneous
  Country: DE (occurrence: DE)
  Receive Date: 20190726
  Receipt Date: 20190726
  Transmission Date: 20191004
  Serious: Yes (Life-Threatening, Hospitalization, Other)
  Sender: FDA-Public Use
  Company Number: DE-ASTRAZENECA-2019SF04705

PATIENT
  Age: 44 Year
  Sex: Female

DRUGS (4)
  1. SEROQUEL [Suspect]
     Active Substance: QUETIAPINE FUMARATE
     Indication: PRODUCT USED FOR UNKNOWN INDICATION
     Dosage: 60.0DF ONCE/SINGLE ADMINISTRATION
     Route: 048
     Dates: start: 20090723, end: 20090723
  2. INVEGA [Suspect]
     Active Substance: PALIPERIDONE
     Indication: PRODUCT USED FOR UNKNOWN INDICATION
     Dosage: 252 MG28.0DF ONCE/SINGLE ADMINISTRATION
     Route: 048
     Dates: start: 20090723, end: 20090723
  3. SOLVEX [Suspect]
     Active Substance: BENZOIC ACID\CHLOROTHYMOL\SALICYLIC ACID\THYMOL OR BROMHEXINE HYDROCHLORIDE OR REBOXETINE MESYLATE
     Indication: PRODUCT USED FOR UNKNOWN INDICATION
     Dosage: 160 MG40.0DF ONCE/SINGLE ADMINISTRATION
     Route: 048
     Dates: start: 20090723, end: 20090723
  4. CYMBALTA [Suspect]
     Active Substance: DULOXETINE HYDROCHLORIDE
     Indication: PRODUCT USED FOR UNKNOWN INDICATION
     Dosage: 1920 MG64.0DF ONCE/SINGLE ADMINISTRATION
     Route: 048
     Dates: start: 20090723, end: 20090723

REACTIONS (6)
  - Respiratory failure [Unknown]
  - Coma [Unknown]
  - Hypotension [Unknown]
  - Intentional overdose [Unknown]
  - Suicide attempt [Unknown]
  - Cardiovascular insufficiency [Unknown]

NARRATIVE: CASE EVENT DATE: 200907
